FAERS Safety Report 11703996 (Version 1)
Quarter: 2015Q4

REPORT INFORMATION
  Report Type: Spontaneous
  Country: US (occurrence: None)
  Receive Date: 20151105
  Receipt Date: 20151105
  Transmission Date: 20160304
  Serious: Yes (Other)
  Sender: FDA-Public Use
  Company Number: None

PATIENT
  Age: 65 Year
  Weight: 84.37 kg

DRUGS (9)
  1. LISINOPRIL. [Concomitant]
     Active Substance: LISINOPRIL
  2. MULTI-VITAMIN [Concomitant]
     Active Substance: .ALPHA.-TOCOPHEROL ACETATE, DL-\ASCORBIC ACID\CYANOCOBALAMIN\FLUORIDE ION\FOLIC ACID\NIACIN\PYRIDOXINE\RIBOFLAVIN\THIAMINE\VITAMIN A\VITAMIN D
  3. LISINOPRIL 20 MG [Suspect]
     Active Substance: LISINOPRIL
     Indication: PRODUCT USED FOR UNKNOWN INDICATION
     Route: 048
     Dates: start: 20120301, end: 20151102
  4. FISH OIL [Concomitant]
     Active Substance: FISH OIL
  5. LISINOPRIL 20 MG [Suspect]
     Active Substance: LISINOPRIL
     Indication: BLOOD PRESSURE MEASUREMENT
     Route: 048
     Dates: start: 20120301, end: 20151102
  6. VITAMIN B12 [Concomitant]
     Active Substance: CYANOCOBALAMIN
  7. C [Concomitant]
  8. E [Concomitant]
  9. D [Concomitant]

REACTIONS (3)
  - Lip swelling [None]
  - Hypoaesthesia eye [None]
  - Throat tightness [None]

NARRATIVE: CASE EVENT DATE: 20151102
